FAERS Safety Report 5953401-4 (Version None)
Quarter: 2008Q4

REPORT INFORMATION
  Report Type: 
  Country: None (occurrence: None)
  Receive Date: 20081114
  Receipt Date: 20081105
  Transmission Date: 20090506
  Serious: Yes (Disabling)
  Sender: FDA-Public Use
  Company Number: US-MERCK-0810USA04907

PATIENT
  Age: 77 Year
  Sex: Female

DRUGS (2)
  1. FOSAMAX [Suspect]
     Indication: OSTEOPENIA
     Route: 048
     Dates: start: 20080918, end: 20081001
  2. SINEMET [Concomitant]
     Route: 048

REACTIONS (2)
  - FALL [None]
  - PAIN IN EXTREMITY [None]
